FAERS Safety Report 19473867 (Version 1)
Quarter: 2021Q2

REPORT INFORMATION
  Report Type: Spontaneous
  Country: CN (occurrence: CN)
  Receive Date: 20210629
  Receipt Date: 20210629
  Transmission Date: 20210717
  Serious: Yes (Hospitalization)
  Sender: FDA-Public Use
  Company Number: CN-GLAXOSMITHKLINE-CNCH2021APC041261

PATIENT
  Sex: Male
  Weight: 65 kg

DRUGS (1)
  1. IBUPROFEN. [Suspect]
     Active Substance: IBUPROFEN
     Indication: TOOTHACHE
     Dosage: 0.3 G, BID
     Route: 048
     Dates: start: 20210502

REACTIONS (14)
  - Suffocation feeling [Recovering/Resolving]
  - Hypersensitivity [Recovering/Resolving]
  - Rash papular [Recovering/Resolving]
  - Nausea [Recovering/Resolving]
  - Vomiting [Recovering/Resolving]
  - Dyspnoea [Recovering/Resolving]
  - Cardiac disorder [Recovering/Resolving]
  - Gastritis [Recovering/Resolving]
  - Rash [Recovering/Resolving]
  - Arteriosclerosis coronary artery [Recovering/Resolving]
  - Chest discomfort [Recovering/Resolving]
  - Tachypnoea [Recovering/Resolving]
  - Bronchitis chronic [Recovering/Resolving]
  - Pruritus [Recovering/Resolving]
